FAERS Safety Report 11524987 (Version 3)
Quarter: 2015Q4

REPORT INFORMATION
  Report Type: Report from Study
  Country: US (occurrence: US)
  Receive Date: 20150918
  Receipt Date: 20151113
  Transmission Date: 20160304
  Serious: Yes (Hospitalization, Other)
  Sender: FDA-Public Use
  Company Number: US-AMGEN-USASP2015094636

PATIENT
  Age: 54 Year
  Sex: Female

DRUGS (1)
  1. ENBREL [Suspect]
     Active Substance: ETANERCEPT
     Indication: PSORIATIC ARTHROPATHY
     Dosage: 50 MG, QWK
     Route: 065
     Dates: start: 20140922

REACTIONS (5)
  - Syncope [Recovered/Resolved]
  - Implantable defibrillator insertion [Recovered/Resolved]
  - Ventricular tachycardia [Recovered/Resolved]
  - Pneumothorax spontaneous [Recovered/Resolved]
  - Ejection fraction abnormal [Recovered/Resolved]

NARRATIVE: CASE EVENT DATE: 201508
